FAERS Safety Report 11484753 (Version 1)
Quarter: 2015Q3

REPORT INFORMATION
  Report Type: Spontaneous
  Country: US (occurrence: US)
  Receive Date: 20150903
  Receipt Date: 20150903
  Transmission Date: 20151125
  Serious: No
  Sender: FDA-Public Use
  Company Number: US-ELI_LILLY_AND_COMPANY-US201208006859

PATIENT
  Age: 66 Year
  Sex: Female

DRUGS (1)
  1. CYMBALTA [Suspect]
     Active Substance: DULOXETINE HYDROCHLORIDE
     Indication: SCIATICA
     Dosage: 30 MG, QD
     Dates: start: 20120820, end: 20120820

REACTIONS (12)
  - Chest discomfort [Unknown]
  - Malaise [Not Recovered/Not Resolved]
  - Psychomotor hyperactivity [Unknown]
  - Blood pressure increased [Unknown]
  - Vision blurred [Unknown]
  - Dyspnoea [Unknown]
  - Nervousness [Unknown]
  - Dizziness [Unknown]
  - Hypersensitivity [Unknown]
  - Insomnia [Unknown]
  - Off label use [Unknown]
  - Feeling abnormal [Not Recovered/Not Resolved]
